FAERS Safety Report 19576673 (Version 1)
Quarter: 2021Q3

REPORT INFORMATION
  Report Type: Spontaneous
  Country: US (occurrence: US)
  Receive Date: 20210719
  Receipt Date: 20210719
  Transmission Date: 20211014
  Serious: Yes (Hospitalization)
  Sender: FDA-Public Use
  Company Number: None

PATIENT
  Sex: Female

DRUGS (2)
  1. VIT D [Concomitant]
     Active Substance: VITAMIN D NOS
  2. IMATINIB MES 400 MG TAB [Suspect]
     Active Substance: IMATINIB
     Indication: PHILADELPHIA POSITIVE CHRONIC MYELOID LEUKAEMIA
     Route: 048
     Dates: start: 20210429, end: 20210716

REACTIONS (7)
  - Swelling [None]
  - Vomiting [None]
  - Nausea [None]
  - Pain [None]
  - Headache [None]
  - Weight increased [None]
  - Chills [None]
